FAERS Safety Report 20093504 (Version 2)
Quarter: 2022Q1

REPORT INFORMATION
  Report Type: Spontaneous
  Country: US (occurrence: US)
  Receive Date: 20211121
  Receipt Date: 20220124
  Transmission Date: 20220423
  Serious: No
  Sender: FDA-Public Use
  Company Number: US-SA-SAC20211117000944

PATIENT
  Age: 48 Year
  Sex: Male

DRUGS (5)
  1. DUPIXENT [Suspect]
     Active Substance: DUPILUMAB
     Indication: Chronic rhinosinusitis with nasal polyps
     Dosage: 300 MG, QOW
     Route: 058
     Dates: start: 202108
  2. XHANCE [Concomitant]
     Active Substance: FLUTICASONE PROPIONATE
  3. XHANCE [Concomitant]
     Active Substance: FLUTICASONE PROPIONATE
  4. TADALAFIL [Concomitant]
     Active Substance: TADALAFIL
  5. TESTOSTERONE CYPIONATE [Concomitant]
     Active Substance: TESTOSTERONE CYPIONATE

REACTIONS (2)
  - Muscle spasms [Unknown]
  - Myalgia [Unknown]
